FAERS Safety Report 5614655-7 (Version None)
Quarter: 2008Q1

REPORT INFORMATION
  Report Type: 
  Country: None (occurrence: None)
  Receive Date: 20080130
  Receipt Date: 20080114
  Transmission Date: 20080703
  Serious: Yes (Death)
  Sender: FDA-Public Use
  Company Number: 2008S1000067

PATIENT
  Age: 85 Year
  Sex: Female

DRUGS (5)
  1. ROXICODONE [Suspect]
     Dates: end: 20060101
  2. CARDIAC GLYCOSIDE [Suspect]
     Dates: end: 20060101
  3. FUROSEMIDE [Suspect]
     Dates: end: 20060101
  4. AMITRIPTYLINE HCL [Suspect]
     Dates: end: 20060101
  5. BENZODIAZEPINE [Suspect]
     Dates: end: 20060101

REACTIONS (1)
  - DEATH [None]
